FAERS Safety Report 8241647-4 (Version None)
Quarter: 2012Q1

REPORT INFORMATION
  Report Type: 
  Country: None (occurrence: None)
  Receive Date: 20120328
  Receipt Date: 20120323
  Transmission Date: 20120608
  Serious: Yes (Hospitalization)
  Sender: FDA-Public Use
  Company Number: KR-ABBOTT-11P-090-0836561-00

PATIENT
  Age: 43 Year
  Sex: Male
  Weight: 52 kg

DRUGS (8)
  1. KALETRA [Suspect]
     Indication: HIV INFECTION
     Dates: start: 20100618, end: 20101201
  2. SEPTRA [Concomitant]
     Indication: OPPORTUNISTIC INFECTION PROPHYLAXIS
     Dosage: 1 TABLET DAILY
     Route: 048
     Dates: start: 20100618
  3. MEDILAC-DS [Concomitant]
     Indication: PROPHYLAXIS
  4. FEXADIN [Concomitant]
     Indication: GASTRIC DISORDER
     Dosage: 100MG DAILY
     Route: 048
     Dates: start: 20100618
  5. 3TC/AZT [Concomitant]
     Indication: ANTIRETROVIRAL THERAPY
     Dosage: 2 TABLETS DAILY
     Dates: start: 20100618, end: 20101201
  6. MEDILAC-DS [Concomitant]
     Indication: GASTRIC DISORDER
     Dosage: 1 CAPSULE DAILY
     Route: 048
     Dates: start: 20100618
  7. OXIRACETAM [Concomitant]
     Indication: AIDS DEMENTIA COMPLEX
     Dosage: 800MG DAILY
     Route: 048
     Dates: start: 20100712, end: 20100808
  8. FEXADIN [Concomitant]
     Indication: PROPHYLAXIS

REACTIONS (4)
  - DEPRESSION [None]
  - COUGH [None]
  - PRURITUS GENERALISED [None]
  - PROGRESSIVE MULTIFOCAL LEUKOENCEPHALOPATHY [None]
